FAERS Safety Report 25813682 (Version 1)
Quarter: 2025Q3

REPORT INFORMATION
  Report Type: Spontaneous
  Country: EU (occurrence: EU)
  Receive Date: 20250917
  Receipt Date: 20250917
  Transmission Date: 20251020
  Serious: Yes (Other)
  Sender: MYLAN
  Company Number: None

PATIENT
  Age: 62 Year
  Sex: Female

DRUGS (2)
  1. METHOTREXATE [Suspect]
     Active Substance: METHOTREXATE
     Indication: Product used for unknown indication
  2. ESTRADIOL VALERATE\NORETHINDRONE ACETATE [Concomitant]
     Active Substance: ESTRADIOL VALERATE\NORETHINDRONE ACETATE

REACTIONS (1)
  - Atrophic vulvovaginitis [Unknown]
